FAERS Safety Report 24770822 (Version 1)
Quarter: 2024Q4

REPORT INFORMATION
  Report Type: Report from Study
  Country: DE (occurrence: DE)
  Receive Date: 20241224
  Receipt Date: 20241224
  Transmission Date: 20250115
  Serious: Yes (Hospitalization)
  Sender: ROCHE
  Company Number: DE-ROCHE-2141017

PATIENT
  Age: 70 Year
  Sex: Male
  Weight: 62 kg

DRUGS (17)
  1. OCREVUS [Suspect]
     Active Substance: OCRELIZUMAB
     Indication: Primary progressive multiple sclerosis
     Route: 042
     Dates: start: 20180613
  2. OCREVUS [Suspect]
     Active Substance: OCRELIZUMAB
     Route: 042
     Dates: start: 20181126
  3. OCREVUS [Suspect]
     Active Substance: OCRELIZUMAB
     Dosage: 2ND MAINTENANCE DOSE
     Route: 042
     Dates: start: 20190513
  4. OCREVUS [Suspect]
     Active Substance: OCRELIZUMAB
     Route: 042
     Dates: start: 202004
  5. OCREVUS [Suspect]
     Active Substance: OCRELIZUMAB
     Route: 042
     Dates: start: 202010
  6. OCREVUS [Suspect]
     Active Substance: OCRELIZUMAB
     Route: 042
     Dates: start: 20200602
  7. OCREVUS [Suspect]
     Active Substance: OCRELIZUMAB
     Route: 042
     Dates: start: 20211027
  8. OCREVUS [Suspect]
     Active Substance: OCRELIZUMAB
     Dosage: SUBSEQUENT DOSE ON 13/APR/2023; FREQUENCY: 223 DAYS
     Route: 042
  9. DOXEPIN [Suspect]
     Active Substance: DOXEPIN
     Indication: Product used for unknown indication
     Route: 065
  10. DOXEPIN [Suspect]
     Active Substance: DOXEPIN
     Dosage: 0-0-2
     Route: 065
  11. DOXEPIN [Suspect]
     Active Substance: DOXEPIN
     Route: 065
  12. DALFAMPRIDINE [Suspect]
     Active Substance: DALFAMPRIDINE
     Indication: Product used for unknown indication
     Dosage: 1-0-1? FREQUENCY TEXT:1-0-1
     Route: 065
  13. DALFAMPRIDINE [Suspect]
     Active Substance: DALFAMPRIDINE
     Dosage: 1-0-1
     Route: 065
  14. LEVODOPA [Concomitant]
     Active Substance: LEVODOPA
     Dosage: FREQUENCY TEXT:1-0-0
  15. AMANTADINE [Concomitant]
     Active Substance: AMANTADINE
     Dosage: FREQUENCY TEXT:1-0-1
  16. TAMSULOSIN [Concomitant]
     Active Substance: TAMSULOSIN
     Dosage: FREQUENCY TEXT:1-0-0
  17. NEUPRO [Concomitant]
     Active Substance: ROTIGOTINE
     Dosage: FREQUENCY TEXT:24H

REACTIONS (30)
  - Headache [Recovered/Resolved]
  - Initial insomnia [Recovered/Resolved]
  - Fall [Unknown]
  - Rib fracture [Recovered/Resolved]
  - Pain in extremity [Recovered/Resolved]
  - Muscular weakness [Recovered/Resolved]
  - Bladder cancer [Not Recovered/Not Resolved]
  - Gallbladder cancer [Recovered/Resolved]
  - Back pain [Recovered/Resolved]
  - Inguinal hernia [Recovered/Resolved]
  - Contusion [Recovered/Resolved]
  - Gait disturbance [Not Recovered/Not Resolved]
  - Balance disorder [Not Recovered/Not Resolved]
  - Chest pain [Not Recovered/Not Resolved]
  - Wound [Recovered/Resolved]
  - Fatigue [Not Recovered/Not Resolved]
  - Movement disorder [Recovered/Resolved]
  - Middle insomnia [Recovered/Resolved]
  - Nasal congestion [Recovered/Resolved]
  - Dry mouth [Recovered/Resolved]
  - Muscle spasms [Recovered/Resolved]
  - Rhinorrhoea [Recovered/Resolved]
  - Arthropod bite [Recovering/Resolving]
  - Arthralgia [Recovered/Resolved]
  - Fluid retention [Recovering/Resolving]
  - Defaecation urgency [Not Recovered/Not Resolved]
  - Erythema [Not Recovered/Not Resolved]
  - Pneumonia [Not Recovered/Not Resolved]
  - Cystitis noninfective [Not Recovered/Not Resolved]
  - Ventricular fibrillation [Not Recovered/Not Resolved]

NARRATIVE: CASE EVENT DATE: 20180613
